FAERS Safety Report 18551986 (Version 1)
Quarter: 2020Q4

REPORT INFORMATION
  Report Type: Spontaneous
  Country: FR (occurrence: FR)
  Receive Date: 20201126
  Receipt Date: 20201126
  Transmission Date: 20210114
  Serious: Yes (Other)
  Sender: FDA-Public Use
  Company Number: FR-ABBVIE-20K-056-3664489-00

PATIENT
  Age: 60 Year
  Sex: Female
  Weight: 63 kg

DRUGS (18)
  1. HUMIRA [Suspect]
     Active Substance: ADALIMUMAB
     Indication: PSORIASIS
     Route: 058
     Dates: end: 20180406
  2. HUMIRA [Suspect]
     Active Substance: ADALIMUMAB
     Route: 058
     Dates: start: 20200901, end: 20200901
  3. COSENTYX [Suspect]
     Active Substance: SECUKINUMAB
     Indication: PSORIASIS
     Route: 058
     Dates: start: 2017, end: 2018
  4. STELARA [Suspect]
     Active Substance: USTEKINUMAB
     Route: 058
     Dates: end: 20190612
  5. METOJECT [Suspect]
     Active Substance: METHOTREXATE SODIUM
     Indication: PSORIASIS
     Route: 058
     Dates: start: 20170515, end: 20170812
  6. METFORMINE [Concomitant]
     Active Substance: METFORMIN HYDROCHLORIDE
     Indication: ACUTE CORONARY SYNDROME
     Dates: start: 201701
  7. METHOTREXATE. [Concomitant]
     Active Substance: METHOTREXATE
     Indication: PRODUCT USED FOR UNKNOWN INDICATION
     Dates: start: 2017, end: 2018
  8. ATORVASTATINE [Concomitant]
     Active Substance: ATORVASTATIN
     Indication: ACUTE CORONARY SYNDROME
     Dates: start: 201701
  9. STELARA [Suspect]
     Active Substance: USTEKINUMAB
     Indication: PSORIASIS
     Route: 058
     Dates: start: 20180715
  10. LEVOTHYROX [Concomitant]
     Active Substance: LEVOTHYROXINE
     Indication: ACUTE CORONARY SYNDROME
     Dates: start: 201701
  11. ATORVASTATINE [Concomitant]
     Active Substance: ATORVASTATIN
     Indication: ACUTE CORONARY SYNDROME
  12. NEBIVOLOL. [Concomitant]
     Active Substance: NEBIVOLOL
     Indication: ACUTE CORONARY SYNDROME
     Dates: start: 201701
  13. XANAX [Concomitant]
     Active Substance: ALPRAZOLAM
     Indication: ACUTE CORONARY SYNDROME
     Dates: start: 201701
  14. RAMIPRIL. [Concomitant]
     Active Substance: RAMIPRIL
     Indication: ACUTE CORONARY SYNDROME
     Dates: start: 201701
  15. DUOPLAVIN [Concomitant]
     Active Substance: ASPIRIN\CLOPIDOGREL
     Indication: ACUTE CORONARY SYNDROME
     Dates: start: 201701
  16. COSENTYX [Suspect]
     Active Substance: SECUKINUMAB
     Dosage: 150MGX2
     Route: 058
     Dates: start: 20190612, end: 201910
  17. VICTOZA [Concomitant]
     Active Substance: LIRAGLUTIDE
     Indication: ACUTE CORONARY SYNDROME
     Dates: start: 201701
  18. FUROSEMIDE. [Concomitant]
     Active Substance: FUROSEMIDE
     Indication: ACUTE CORONARY SYNDROME
     Dates: start: 201701

REACTIONS (3)
  - Endometrial adenocarcinoma [Unknown]
  - Metrorrhagia [Unknown]
  - Diarrhoea [Unknown]
